FAERS Safety Report 8020276-1 (Version None)
Quarter: 2012Q1

REPORT INFORMATION
  Report Type: 
  Country: None (occurrence: None)
  Receive Date: 20120103
  Receipt Date: 20111220
  Transmission Date: 20120608
  Serious: Yes (Hospitalization)
  Sender: FDA-Public Use
  Company Number: FR-SANOFI-AVENTIS-2011SA083242

PATIENT
  Age: 14 Year
  Sex: Female

DRUGS (10)
  1. NEXIUM [Suspect]
     Route: 048
     Dates: start: 20110913, end: 20111013
  2. TACROLIMUS [Suspect]
     Indication: LUNG TRANSPLANT
     Route: 048
     Dates: start: 20051001
  3. RIMIFON [Suspect]
     Indication: TUBERCULOSIS
     Route: 048
     Dates: start: 20110608, end: 20111009
  4. TOCO [Concomitant]
  5. INSULIN [Concomitant]
  6. RIFADIN [Suspect]
     Indication: PULMONARY TUBERCULOSIS
     Route: 048
     Dates: start: 20110608, end: 20111009
  7. MYCOPHENOLATE MOFETIL (CELLCEPT) [Suspect]
     Indication: LUNG TRANSPLANT
     Route: 048
     Dates: start: 20051020, end: 20111010
  8. VFEND [Concomitant]
     Indication: ASPERGILLOSIS
     Route: 048
     Dates: start: 20110913, end: 20110928
  9. RETINOL [Concomitant]
  10. CREON [Concomitant]

REACTIONS (3)
  - NEUTROPENIA [None]
  - ANAEMIA [None]
  - BICYTOPENIA [None]
